FAERS Safety Report 7488095-2 (Version None)
Quarter: 2011Q2

REPORT INFORMATION
  Report Type: 
  Country: None (occurrence: None)
  Receive Date: 20110518
  Receipt Date: 20110517
  Transmission Date: 20111010
  Serious: Yes (Other)
  Sender: FDA-Public Use
  Company Number: DE-ROCHE-705386

PATIENT
  Sex: Female
  Weight: 88 kg

DRUGS (3)
  1. RIBAVIRIN [Suspect]
     Route: 048
     Dates: start: 20100112, end: 20100505
  2. PEGINTERFERON ALFA-2A [Suspect]
     Route: 058
     Dates: start: 20100121, end: 20100505
  3. OLMESARTAN MEDOXOMIL [Suspect]
     Route: 065

REACTIONS (4)
  - PALPITATIONS [None]
  - ANAEMIA [None]
  - HEART RATE INCREASED [None]
  - ASTHENIA [None]
